FAERS Safety Report 4699931-7 (Version None)
Quarter: 2005Q2

REPORT INFORMATION
  Report Type: 
  Country: None (occurrence: None)
  Receive Date: 20050624
  Receipt Date: 20050620
  Transmission Date: 20051028
  Serious: Yes (Hospitalization)
  Sender: FDA-Public Use
  Company Number: US-MERCK-0506USA03154

PATIENT
  Sex: Male

DRUGS (5)
  1. VIOXX [Suspect]
     Route: 048
  2. TYLENOL [Concomitant]
     Indication: MUSCLE SPASMS
     Route: 048
     Dates: start: 19890101
  3. TYLENOL [Concomitant]
     Indication: MIGRAINE
     Route: 048
     Dates: start: 19890101
  4. MOTRIN [Concomitant]
     Indication: MUSCLE SPASMS
     Route: 048
     Dates: start: 19890101
  5. MOTRIN [Concomitant]
     Indication: MIGRAINE
     Route: 048
     Dates: start: 19890101

REACTIONS (9)
  - CARDIAC FAILURE CONGESTIVE [None]
  - CHEST PAIN [None]
  - DEPRESSION [None]
  - DYSPNOEA [None]
  - HEADACHE [None]
  - HYPERTENSION [None]
  - MUSCLE SPASMS [None]
  - MYOCARDIAL INFARCTION [None]
  - RENAL DISORDER [None]
